FAERS Safety Report 6930685-7 (Version None)
Quarter: 2010Q3

REPORT INFORMATION
  Report Type: 
  Country: None (occurrence: None)
  Receive Date: 20100813
  Receipt Date: 20100730
  Transmission Date: 20110219
  Serious: Yes (Other)
  Sender: FDA-Public Use
  Company Number: 1000012336

PATIENT
  Age: 39 Year
  Sex: Female
  Weight: 70 kg

DRUGS (1)
  1. ESCITALOPRAM [Suspect]
     Indication: ANXIETY
     Dosage: 10 MG (10 MG,1 IN 1 D),ORAL
     Route: 048
     Dates: start: 20070101, end: 20100113

REACTIONS (5)
  - ALCOHOL USE [None]
  - DIZZINESS [None]
  - DRUG INEFFECTIVE [None]
  - HALLUCINATION [None]
  - TACHYPHRENIA [None]
